FAERS Safety Report 7611693-X (Version None)
Quarter: 2011Q3

REPORT INFORMATION
  Report Type: 
  Country: None (occurrence: None)
  Receive Date: 20110715
  Receipt Date: 20110706
  Transmission Date: 20111222
  Serious: Yes (Hospitalization)
  Sender: FDA-Public Use
  Company Number: FR-MERCK-1107USA01360

PATIENT
  Age: 75 Year
  Sex: Male

DRUGS (5)
  1. ALLOPURINOL [Suspect]
     Route: 048
  2. ASPIRIN [Suspect]
     Route: 048
  3. JANUMET [Suspect]
     Indication: TYPE 2 DIABETES MELLITUS
     Route: 048
  4. HYDROCORTISONE [Suspect]
     Route: 048
  5. OMEPRAZOLE [Suspect]
     Route: 048

REACTIONS (1)
  - LUNG INFECTION [None]
